FAERS Safety Report 4945717-5 (Version None)
Quarter: 2006Q1

REPORT INFORMATION
  Report Type: 
  Country: None (occurrence: None)
  Receive Date: 20060117
  Receipt Date: 20050330
  Transmission Date: 20060701
  Serious: Yes (Death)
  Sender: FDA-Public Use
  Company Number: A03200500916

PATIENT
  Age: 51 Year
  Sex: Male
  Weight: 96.1626 kg

DRUGS (3)
  1. PLAVIX [Suspect]
     Dosage: 75 MG QD ORAL
     Route: 048
  2. ASPIRIN [Suspect]
     Dosage: 81 MG QD ORAL
     Route: 048
  3. SUPPLEMENT [Concomitant]

REACTIONS (2)
  - HEADACHE [None]
  - SUBDURAL HAEMORRHAGE [None]
